FAERS Safety Report 7007495-8 (Version None)
Quarter: 2010Q3

REPORT INFORMATION
  Report Type: 
  Country: None (occurrence: None)
  Receive Date: 20100922
  Receipt Date: 20100913
  Transmission Date: 20110219
  Serious: Yes (Hospitalization)
  Sender: FDA-Public Use
  Company Number: US-ASTRAZENECA-2010SE42931

PATIENT
  Age: 78 Year
  Sex: Male

DRUGS (9)
  1. SYMBICORT [Suspect]
     Indication: CHRONIC OBSTRUCTIVE PULMONARY DISEASE
     Dosage: 160/4.5
     Route: 055
     Dates: start: 20100801
  2. NEXIUM [Suspect]
     Route: 048
  3. ALLOPURINOL [Concomitant]
  4. ALBUTEROL [Concomitant]
  5. DIOVAN [Concomitant]
  6. BUMEX [Concomitant]
  7. SPIRIVA [Concomitant]
  8. VICODIN [Concomitant]
  9. TRICOR [Concomitant]

REACTIONS (1)
  - DUODENAL ULCER [None]
